FAERS Safety Report 7947015-4 (Version None)
Quarter: 2011Q4

REPORT INFORMATION
  Report Type: 
  Country: None (occurrence: None)
  Receive Date: 20111129
  Receipt Date: 20110616
  Transmission Date: 20120403
  Serious: No
  Sender: FDA-Public Use
  Company Number: US-ASTRAZENECA-2011SE37196

PATIENT
  Age: 80 Year
  Sex: Female
  Weight: 38.6 kg

DRUGS (2)
  1. VIMOVO [Suspect]
     Indication: CONVULSION
     Dosage: 500 MG/ 20 MG BID
     Route: 048
     Dates: start: 20110501
  2. VIMOVO [Suspect]
     Indication: ARTHRITIS
     Dosage: 500 MG/ 20 MG BID
     Route: 048
     Dates: start: 20110501

REACTIONS (3)
  - WEIGHT INCREASED [None]
  - OFF LABEL USE [None]
  - THERAPEUTIC RESPONSE UNEXPECTED [None]
